FAERS Safety Report 10211389 (Version 1)
Quarter: 2014Q2

REPORT INFORMATION
  Report Type: Spontaneous
  Country: US (occurrence: None)
  Receive Date: 20140530
  Receipt Date: 20140530
  Transmission Date: 20141212
  Serious: Yes (Hospitalization)
  Sender: FDA-Public Use
  Company Number: None

PATIENT
  Age: 66 Year
  Sex: Male
  Weight: 83 kg

DRUGS (3)
  1. BRILINTA [Suspect]
     Indication: ACUTE MYOCARDIAL INFARCTION
     Dosage: 1 TABLET, BID, ORAL
     Route: 048
     Dates: start: 20140301, end: 20140416
  2. BRILINTA [Suspect]
     Indication: CORONARY ARTERIAL STENT INSERTION
     Dosage: 1 TABLET, BID, ORAL
     Route: 048
     Dates: start: 20140301, end: 20140416
  3. ASPRIN 81MG [Concomitant]

REACTIONS (4)
  - Upper gastrointestinal haemorrhage [None]
  - Hiatus hernia [None]
  - Melaena [None]
  - Gastrointestinal erosion [None]
